FAERS Safety Report 15121398 (Version 7)
Quarter: 2018Q4

REPORT INFORMATION
  Report Type: Spontaneous
  Country: US (occurrence: US)
  Receive Date: 20180709
  Receipt Date: 20181129
  Transmission Date: 20190204
  Serious: No
  Sender: FDA-Public Use
  Company Number: US-PFIZER INC-2018274057

PATIENT
  Age: 60 Year
  Sex: Female
  Weight: 68 kg

DRUGS (5)
  1. LYRICA [Suspect]
     Active Substance: PREGABALIN
     Indication: ANEURYSM
  2. LYRICA [Suspect]
     Active Substance: PREGABALIN
     Indication: DISCOMFORT
     Dosage: 300 MG, DAILY (4 CAPSULES)
     Route: 048
     Dates: start: 2009, end: 201807
  3. LYRICA [Suspect]
     Active Substance: PREGABALIN
     Indication: HEMIPARESIS
     Dosage: 75 MG, TWICE DAILY
     Route: 048
  4. LYRICA [Suspect]
     Active Substance: PREGABALIN
     Indication: NEURALGIA
  5. LYRICA [Suspect]
     Active Substance: PREGABALIN
     Indication: PERONEAL NERVE PALSY

REACTIONS (14)
  - Balance disorder [Unknown]
  - Feeling abnormal [Recovered/Resolved]
  - Pre-existing condition improved [Unknown]
  - Memory impairment [Unknown]
  - Cognitive disorder [Recovered/Resolved]
  - Confusional state [Unknown]
  - Pain [Unknown]
  - Asthenia [Unknown]
  - Malaise [Unknown]
  - Fear of death [Unknown]
  - Fall [Unknown]
  - Therapeutic response unexpected [Unknown]
  - Movement disorder [Unknown]
  - Aphasia [Recovered/Resolved]
